FAERS Safety Report 10534614 (Version 2)
Quarter: 2014Q4

REPORT INFORMATION
  Report Type: Spontaneous
  Country: JP (occurrence: JP)
  Receive Date: 20141022
  Receipt Date: 20141104
  Transmission Date: 20150529
  Serious: Yes (Other)
  Sender: FDA-Public Use
  Company Number: JP-GLAXOSMITHKLINE-JP2014JPN004076

PATIENT
  Age: 85 Year
  Sex: Female

DRUGS (3)
  1. FLOLAN [Suspect]
     Active Substance: EPOPROSTENOL SODIUM
     Dosage: 5 UNK, UNK
     Route: 042
     Dates: start: 20140304
  2. EPOPROSTENOL SODIUM. [Suspect]
     Active Substance: EPOPROSTENOL SODIUM
  3. WARFARIN [Concomitant]
     Active Substance: WARFARIN
     Route: 048

REACTIONS (3)
  - Pulmonary oedema [Unknown]
  - Pulmonary vein occlusion [Unknown]
  - Hypoxia [Unknown]

NARRATIVE: CASE EVENT DATE: 2014
